FAERS Safety Report 9221119 (Version 1)
Quarter: 2013Q2

REPORT INFORMATION
  Report Type: Spontaneous
  Country: US (occurrence: US)
  Receive Date: 20130409
  Receipt Date: 20130409
  Transmission Date: 20140414
  Serious: No
  Sender: FDA-Public Use
  Company Number: US-009507513-1304USA000663

PATIENT
  Age: 41 Year
  Sex: Female

DRUGS (1)
  1. PEGINTRON [Suspect]
     Dosage: UNK
     Dates: start: 20130323

REACTIONS (3)
  - Inappropriate schedule of drug administration [Unknown]
  - No adverse event [Unknown]
  - Product quality issue [Unknown]
